FAERS Safety Report 4911721-6 (Version None)
Quarter: 2006Q1

REPORT INFORMATION
  Report Type: 
  Country: None (occurrence: None)
  Receive Date: 20060213
  Receipt Date: 20060208
  Transmission Date: 20060701
  Serious: Yes (Hospitalization)
  Sender: FDA-Public Use
  Company Number: S05-USA-05053-01

PATIENT
  Age: 24 Year
  Sex: Male
  Weight: 83.9154 kg

DRUGS (2)
  1. LEXAPRO [Suspect]
     Indication: ANGER
     Dosage: 5 MG QD PO
     Route: 048
     Dates: start: 20051031, end: 20051103
  2. LEXAPRO [Suspect]
     Indication: ANGER

REACTIONS (2)
  - ENTEROCOLITIS INFECTIOUS [None]
  - INFLUENZA LIKE ILLNESS [None]
